FAERS Safety Report 10587317 (Version 1)
Quarter: 2014Q4

REPORT INFORMATION
  Report Type: Spontaneous
  Country: FR (occurrence: FR)
  Receive Date: 20141117
  Receipt Date: 20141117
  Transmission Date: 20150529
  Serious: Yes (Death, Hospitalization)
  Sender: FDA-Public Use
  Company Number: FR-JNJFOC-20141106678

PATIENT
  Age: 78 Year
  Sex: Female

DRUGS (8)
  1. XARELTO [Suspect]
     Active Substance: RIVAROXABAN
     Indication: PRODUCT USED FOR UNKNOWN INDICATION
     Route: 048
     Dates: end: 20140411
  2. CALCITE D [Concomitant]
     Active Substance: CALCIUM CARBONATE
     Route: 065
  3. FLECAINE [Concomitant]
     Active Substance: FLECAINIDE
     Route: 065
  4. LANSOYL [Concomitant]
     Active Substance: MINERAL OIL
     Route: 065
  5. OMEPRAZOLE MAGNESIUM. [Concomitant]
     Active Substance: OMEPRAZOLE MAGNESIUM
     Route: 065
  6. DAFALGAN [Concomitant]
     Active Substance: ACETAMINOPHEN
     Route: 065
  7. XALATAN [Concomitant]
     Active Substance: LATANOPROST
     Route: 065
  8. LOSARTAN [Concomitant]
     Active Substance: LOSARTAN
     Route: 065

REACTIONS (3)
  - Cerebral haematoma [Fatal]
  - Hemiplegia [Fatal]
  - Coma [Fatal]

NARRATIVE: CASE EVENT DATE: 20140411
